FAERS Safety Report 7498501-5 (Version None)
Quarter: 2011Q2

REPORT INFORMATION
  Report Type: 
  Country: None (occurrence: None)
  Receive Date: 20110516
  Receipt Date: 20110429
  Transmission Date: 20111010
  Serious: Yes (Other)
  Sender: FDA-Public Use
  Company Number: AUR-APL-2011-01146

PATIENT
  Sex: Female

DRUGS (6)
  1. SEROQUEL [Suspect]
     Indication: PSYCHOTIC DISORDER
     Dosage: 400MG-DAILY-
     Dates: start: 20110310
  2. SERTRALINE HYDROCHLORIDE [Suspect]
     Indication: OBSESSIVE-COMPULSIVE DISORDER
     Dosage: 200MG-DAILY-
     Dates: start: 20110310, end: 20110325
  3. VALPROATE SODIUM [Concomitant]
  4. LOPERAMIDE [Concomitant]
  5. GESTODENE+ETHINYLESTRADIAL [Concomitant]
  6. FLURAZEPAM [Concomitant]

REACTIONS (1)
  - PLEUROTHOTONUS [None]
